FAERS Safety Report 15571325 (Version 5)
Quarter: 2019Q1

REPORT INFORMATION
  Report Type: Report from Study
  Country: US (occurrence: US)
  Receive Date: 20181031
  Receipt Date: 20190312
  Transmission Date: 20190417
  Serious: Yes (Hospitalization, Other)
  Sender: FDA-Public Use
  Company Number: US-ACTELION-A-NJ2018-180882

PATIENT
  Age: 63 Year
  Sex: Female
  Weight: 113.38 kg

DRUGS (1)
  1. OPSUMIT [Suspect]
     Active Substance: MACITENTAN
     Indication: PULMONARY HYPERTENSION
     Dosage: 10 MG, QD
     Route: 048
     Dates: start: 200608

REACTIONS (15)
  - Blindness transient [Unknown]
  - Dyspnoea [Unknown]
  - Fatigue [Unknown]
  - Palpitations [Unknown]
  - Unevaluable event [Unknown]
  - Fall [Unknown]
  - Product dose omission [Unknown]
  - Muscle spasms [Unknown]
  - Dyskinesia [Unknown]
  - Peripheral swelling [Unknown]
  - Swelling [Unknown]
  - Chest pain [Unknown]
  - Syncope [Unknown]
  - Blindness [Unknown]
  - Condition aggravated [Unknown]

NARRATIVE: CASE EVENT DATE: 201901
